FAERS Safety Report 11423373 (Version 1)
Quarter: 2015Q3

REPORT INFORMATION
  Report Type: Spontaneous
  Country: US (occurrence: None)
  Receive Date: 20150826
  Receipt Date: 20150826
  Transmission Date: 20151125
  Serious: Yes (Life-Threatening, Disabling)
  Sender: FDA-Public Use
  Company Number: None

PATIENT
  Age: 28 Year
  Sex: Male
  Weight: 72.58 kg

DRUGS (12)
  1. TRAZODONE [Concomitant]
     Active Substance: TRAZODONE HYDROCHLORIDE
  2. BACLOFEN. [Concomitant]
     Active Substance: BACLOFEN
  3. DIAZEPAM. [Concomitant]
     Active Substance: DIAZEPAM
  4. LYRICA [Concomitant]
     Active Substance: PREGABALIN
  5. FLUTICASONE [Concomitant]
     Active Substance: FLUTICASONE\FLUTICASONE PROPIONATE
  6. CYPROHEPTADINE. [Concomitant]
     Active Substance: CYPROHEPTADINE
  7. MULTI-VITAMIN [Concomitant]
     Active Substance: .ALPHA.-TOCOPHEROL ACETATE, DL-\ASCORBIC ACID\CYANOCOBALAMIN\FLUORIDE ION\FOLIC ACID\NIACIN\PYRIDOXINE\RIBOFLAVIN\THIAMINE\VITAMIN A\VITAMIN D
  8. METAXALONE. [Concomitant]
     Active Substance: METAXALONE
  9. BUTRANS [Suspect]
     Active Substance: BUPRENORPHINE
     Indication: PAIN
     Dosage: 1 PATCH/WEEK
     Route: 061
     Dates: start: 20150313
  10. BUTRANS [Suspect]
     Active Substance: BUPRENORPHINE
     Indication: MYALGIA
     Dosage: 1 PATCH/WEEK
     Route: 061
     Dates: start: 20150313
  11. BUTRANS [Suspect]
     Active Substance: BUPRENORPHINE
     Indication: MYOSITIS
     Dosage: 1 PATCH/WEEK
     Route: 061
     Dates: start: 20150313
  12. ADDERALL [Concomitant]
     Active Substance: AMPHETAMINE ASPARTATE\AMPHETAMINE SULFATE\DEXTROAMPHETAMINE SACCHARATE\DEXTROAMPHETAMINE SULFATE

REACTIONS (9)
  - Application site irritation [None]
  - Fatigue [None]
  - Muscle spasticity [None]
  - Application site scar [None]
  - Hypersensitivity [None]
  - Drug prescribing error [None]
  - Documented hypersensitivity to administered product [None]
  - Application site bruise [None]
  - Migraine [None]

NARRATIVE: CASE EVENT DATE: 20150313
